FAERS Safety Report 4391253-7 (Version None)
Quarter: 2004Q2

REPORT INFORMATION
  Report Type: 
  Country: None (occurrence: None)
  Receive Date: 20040621
  Receipt Date: 20031105
  Transmission Date: 20050107
  Serious: Yes (Death)
  Sender: FDA-Public Use
  Company Number: USA-2002-0000726

PATIENT
  Age: 17 Year
  Sex: Male

DRUGS (2)
  1. OXYCONTIN [Suspect]
     Dosage: 80 MG, INHALATION
     Route: 055
  2. ETHYL ALCOHOL (EHTANOL) [Suspect]
     Dosage: UNK ML, ORAL
     Route: 048

REACTIONS (1)
  - ACCIDENTAL OVERDOSE [None]
